FAERS Safety Report 9100576 (Version 1)
Quarter: 2013Q1

REPORT INFORMATION
  Report Type: Report from Study
  Country: IT (occurrence: MW)
  Receive Date: 20130215
  Receipt Date: 20130215
  Transmission Date: 20140127
  Serious: Yes (Other)
  Sender: FDA-Public Use
  Company Number: MW-B.I. PHARMACEUTICALS,INC./RIDGEFIELD-2013-BI-03902GD

PATIENT
  Sex: 0

DRUGS (4)
  1. NEVIRAPINE [Suspect]
     Indication: HUMAN IMMUNODEFICIENCY VIRUS TRANSMISSION
     Dosage: 2 MG/KG OF BODY WEIGHT
  2. NEVIRAPINE [Suspect]
     Indication: PROPHYLAXIS AGAINST HIV INFECTION
  3. ANTI-HIV AGENT [Suspect]
     Indication: HUMAN IMMUNODEFICIENCY VIRUS TRANSMISSION
     Route: 064
  4. ANTI-HIV AGENT [Suspect]
     Indication: PROPHYLAXIS AGAINST HIV INFECTION
     Route: 063

REACTIONS (1)
  - Pneumonia [Unknown]
